FAERS Safety Report 6503082-6 (Version None)
Quarter: 2009Q4

REPORT INFORMATION
  Report Type: 
  Country: None (occurrence: None)
  Receive Date: 20091217
  Receipt Date: 20091208
  Transmission Date: 20100525
  Serious: Yes (Hospitalization, Other)
  Sender: FDA-Public Use
  Company Number: PHHY2009FR54873

PATIENT
  Age: 73 Year
  Sex: Male

DRUGS (3)
  1. VOLTAREN [Suspect]
     Dosage: 100 MG, BID
     Route: 048
     Dates: start: 20091019, end: 20091021
  2. OMACOR [Suspect]
     Dosage: 1 DF DAILY
     Route: 048
     Dates: start: 20091019, end: 20091021
  3. DERINOX [Suspect]
     Dosage: UNK
     Route: 045
     Dates: start: 20091019, end: 20091021

REACTIONS (6)
  - ANGIOEDEMA [None]
  - BRONCHOPNEUMOPATHY [None]
  - DIABETES MELLITUS [None]
  - PYREXIA [None]
  - RASH GENERALISED [None]
  - TOXIC SKIN ERUPTION [None]
